FAERS Safety Report 16946871 (Version 1)
Quarter: 2019Q4

REPORT INFORMATION
  Report Type: Spontaneous
  Country: CA (occurrence: CA)
  Receive Date: 20191022
  Receipt Date: 20191022
  Transmission Date: 20200122
  Serious: Yes (Other)
  Sender: FDA-Public Use
  Company Number: CA-TEVA-2019-CA-1124686

PATIENT
  Age: 79 Year
  Sex: Female
  Weight: 65 kg

DRUGS (16)
  1. MEGESTROL [Concomitant]
     Active Substance: MEGESTROL
  2. ACETYLSALICYLIC ACID [Suspect]
     Active Substance: ASPIRIN
     Route: 065
  3. BISOPROLOL [Concomitant]
     Active Substance: BISOPROLOL
  4. SALBUTAMOL [Concomitant]
     Active Substance: ALBUTEROL
  5. ERGOCALCIFEROL. [Concomitant]
     Active Substance: ERGOCALCIFEROL
  6. DOCUSATE [Concomitant]
     Active Substance: DOCUSATE
  7. EPREX [Concomitant]
     Active Substance: ERYTHROPOIETIN
  8. CEFAZOLIN [Suspect]
     Active Substance: CEFAZOLIN
     Indication: PERITONITIS
     Route: 065
  9. FLUTICASONE. [Concomitant]
     Active Substance: FLUTICASONE
  10. NEPAFENAC [Concomitant]
     Active Substance: NEPAFENAC
  11. AZITHROMYCIN ANHYDROUS. [Suspect]
     Active Substance: AZITHROMYCIN ANHYDROUS
     Indication: COUGH
     Route: 048
  12. PANTOPRAZOLE [Concomitant]
     Active Substance: PANTOPRAZOLE
  13. SEVELAMER [Concomitant]
     Active Substance: SEVELAMER
  14. AMLODIPINE [Concomitant]
     Active Substance: AMLODIPINE BESYLATE
  15. ONE ALPHA [Concomitant]
     Active Substance: ALFACALCIDOL
  16. SODIUM POLYSTYRENE SULFONATE. [Concomitant]
     Active Substance: SODIUM POLYSTYRENE SULFONATE

REACTIONS (7)
  - Oral disorder [Recovering/Resolving]
  - Arthralgia [Recovering/Resolving]
  - Lip swelling [Recovering/Resolving]
  - Blister [Recovering/Resolving]
  - Laryngeal discomfort [Recovering/Resolving]
  - Pruritus [Recovering/Resolving]
  - Product dose omission [Recovering/Resolving]
